FAERS Safety Report 4813535-4 (Version None)
Quarter: 2005Q4

REPORT INFORMATION
  Report Type: 
  Country: None (occurrence: None)
  Receive Date: 20051028
  Receipt Date: 20050222
  Transmission Date: 20060501
  Serious: Yes (Other)
  Sender: FDA-Public Use
  Company Number: US-GLAXOSMITHKLINE-A0546723A

PATIENT
  Age: 67 Year
  Sex: Female

DRUGS (10)
  1. ADVAIR DISKUS 100/50 [Suspect]
     Indication: ASTHMA
     Dosage: 1PUFF TWICE PER DAY
     Route: 055
     Dates: start: 20050126, end: 20050217
  2. PREMARIN [Concomitant]
  3. PREVACID [Concomitant]
  4. ALLEGRA [Concomitant]
  5. FLONASE [Concomitant]
  6. ATROVENT [Concomitant]
  7. INDERAL [Concomitant]
  8. SYNTHROID [Concomitant]
  9. CALCIUM GLUCONATE [Concomitant]
  10. LESCOL XL [Concomitant]

REACTIONS (1)
  - PNEUMONIA [None]
